FAERS Safety Report 19043325 (Version 1)
Quarter: 2021Q1

REPORT INFORMATION
  Report Type: Spontaneous
  Country: US (occurrence: US)
  Receive Date: 20210322
  Receipt Date: 20210322
  Transmission Date: 20210420
  Serious: Yes (Hospitalization, Other)
  Sender: FDA-Public Use
  Company Number: None

PATIENT
  Age: 7 Year
  Sex: Male
  Weight: 22.95 kg

DRUGS (4)
  1. MIRALAX [Concomitant]
     Active Substance: POLYETHYLENE GLYCOL 3350
  2. SINGULAIR [Concomitant]
     Active Substance: MONTELUKAST SODIUM
  3. POLYETHYLENE GLYCOL 3350. [Suspect]
     Active Substance: POLYETHYLENE GLYCOL 3350
     Indication: CONSTIPATION
     Dosage: ?          QUANTITY:2 CAPFULS;?
     Route: 048
     Dates: start: 20160801, end: 20200815
  4. ZYRTEC [Concomitant]
     Active Substance: CETIRIZINE HYDROCHLORIDE

REACTIONS (8)
  - Hypersensitivity [None]
  - Seizure [None]
  - Tourette^s disorder [None]
  - Nervous system disorder [None]
  - Muscle twitching [None]
  - Sticky skin [None]
  - Learning disability [None]
  - Excessive eye blinking [None]

NARRATIVE: CASE EVENT DATE: 20200815
